FAERS Safety Report 9335147 (Version 1)
Quarter: 2013Q2

REPORT INFORMATION
  Report Type: Spontaneous
  Country: US (occurrence: US)
  Receive Date: 20130606
  Receipt Date: 20130606
  Transmission Date: 20140414
  Serious: No
  Sender: FDA-Public Use
  Company Number: US-009507513-1305USA018070

PATIENT
  Age: 39 Year
  Sex: Female

DRUGS (6)
  1. SAPHRIS [Suspect]
     Indication: BIPOLAR DISORDER
     Dosage: 5 MG, AT BEDTIME
     Route: 060
     Dates: start: 20130417, end: 20130529
  2. SAPHRIS [Suspect]
     Indication: MANIA
  3. SAPHRIS [Suspect]
     Indication: PSYCHOTIC DISORDER
  4. LEXAPRO [Concomitant]
  5. HYDROXYZINE [Concomitant]
     Dosage: 25 MG, TID
  6. ACYCLOVIR [Concomitant]
     Indication: HERPES VIRUS INFECTION
     Dosage: (AS NEEDED FOR HERPES OUTBREAKS) 800 MG, QID

REACTIONS (5)
  - Nausea [Recovered/Resolved]
  - Hypoaesthesia oral [Recovered/Resolved]
  - Sedation [Recovered/Resolved]
  - Vomiting [Recovered/Resolved]
  - Product taste abnormal [Unknown]
